FAERS Safety Report 4819010-5 (Version None)
Quarter: 2005Q4

REPORT INFORMATION
  Report Type: 
  Country: None (occurrence: None)
  Receive Date: 20051101
  Receipt Date: 20051025
  Transmission Date: 20060501
  Serious: Yes (Life-Threatening, Hospitalization)
  Sender: FDA-Public Use
  Company Number: 2005AL004371

PATIENT
  Age: 57 Year
  Sex: Female

DRUGS (4)
  1. SERAX [Suspect]
     Dosage: SEE IMAGE
     Route: 048
     Dates: end: 20050811
  2. SERAX [Suspect]
     Dosage: SEE IMAGE
     Route: 048
     Dates: start: 20050412, end: 20050812
  3. SERAX [Suspect]
     Dosage: SEE IMAGE
     Route: 048
     Dates: start: 20050812, end: 20050812
  4. MEPRONIZINE ({NULL}) [Suspect]
     Dosage: SEE IMAGE
     Route: 048
     Dates: start: 20050812, end: 20050812

REACTIONS (7)
  - BLOOD PRESSURE DECREASED [None]
  - COMA [None]
  - GLASGOW COMA SCALE ABNORMAL [None]
  - HEART RATE INCREASED [None]
  - MULTIPLE DRUG OVERDOSE INTENTIONAL [None]
  - OXYGEN SATURATION DECREASED [None]
  - SUICIDE ATTEMPT [None]
